FAERS Safety Report 19615933 (Version 1)
Quarter: 2021Q3

REPORT INFORMATION
  Report Type: Spontaneous
  Country: FR (occurrence: FR)
  Receive Date: 20210727
  Receipt Date: 20210727
  Transmission Date: 20211014
  Serious: Yes (Death, Life-Threatening, Other)
  Sender: FDA-Public Use
  Company Number: FR-ABBVIE-21K-056-4012139-00

PATIENT
  Age: 59 Year
  Sex: Male

DRUGS (16)
  1. TESTOSTERONE. [Suspect]
     Active Substance: TESTOSTERONE
     Indication: PRODUCT USED FOR UNKNOWN INDICATION
     Dosage: ABUSE
     Route: 065
  2. TRENBOLONE [Suspect]
     Active Substance: TRENBOLONE
     Indication: PRODUCT USED FOR UNKNOWN INDICATION
     Dosage: ABUSE
     Route: 065
  3. METANDIENONE [Suspect]
     Active Substance: METHANDROSTENOLONE
     Indication: PRODUCT USED FOR UNKNOWN INDICATION
     Dosage: ABUSE
     Route: 065
  4. ANDROSTENEDIONE [Suspect]
     Active Substance: ANDROSTENEDIONE
     Indication: PRODUCT USED FOR UNKNOWN INDICATION
     Dosage: ABUSE
     Route: 065
  5. CHLORODEHYDROMETHYLTESTOSTERONE [Suspect]
     Active Substance: CHLORODEHYDROMETHYLTESTOSTERONE
     Indication: PRODUCT USED FOR UNKNOWN INDICATION
     Dosage: ABUSE
     Route: 065
  6. DROSTANOLONE [Suspect]
     Active Substance: DROMOSTANOLONE
     Indication: PRODUCT USED FOR UNKNOWN INDICATION
     Dosage: ABUSE
     Route: 065
  7. NANDROLONE [Suspect]
     Active Substance: NANDROLONE
     Indication: PRODUCT USED FOR UNKNOWN INDICATION
     Dosage: ABUSE
     Route: 065
  8. OXANDROLONE. [Suspect]
     Active Substance: OXANDROLONE
     Indication: PRODUCT USED FOR UNKNOWN INDICATION
     Dosage: ABUSE
     Route: 065
  9. PRASTERONE [Suspect]
     Active Substance: PRASTERONE
     Indication: PRODUCT USED FOR UNKNOWN INDICATION
     Dosage: ABUSE
     Route: 065
  10. ANDROSTANOLONE. [Suspect]
     Active Substance: ANDROSTANOLONE
     Indication: PRODUCT USED FOR UNKNOWN INDICATION
     Dosage: ABUSE
     Route: 065
  11. MESTEROLONE [Suspect]
     Active Substance: MESTEROLONE
     Indication: PRODUCT USED FOR UNKNOWN INDICATION
     Dosage: ABUSE
     Route: 065
  12. METENOLONE [Suspect]
     Active Substance: METHENOLONE ENANTHATE
     Indication: PRODUCT USED FOR UNKNOWN INDICATION
     Dosage: ABUSE
     Route: 065
  13. STANOZOLOL [Suspect]
     Active Substance: STANOZOLOL
     Indication: PRODUCT USED FOR UNKNOWN INDICATION
     Dosage: ABUSE
     Route: 065
  14. TESTOSTERONE DECANOATE [Suspect]
     Active Substance: TESTOSTERONE DECANOATE
     Indication: PRODUCT USED FOR UNKNOWN INDICATION
     Dosage: ABUSE
     Route: 065
  15. METHYLTESTOSTERONE. [Suspect]
     Active Substance: METHYLTESTOSTERONE
     Indication: PRODUCT USED FOR UNKNOWN INDICATION
     Dosage: ABUSE
     Route: 065
  16. TESTOSTERONE PROPIONATE. [Suspect]
     Active Substance: TESTOSTERONE PROPIONATE
     Indication: PRODUCT USED FOR UNKNOWN INDICATION
     Dosage: ABUSE
     Route: 065

REACTIONS (3)
  - Drug abuse [Fatal]
  - Cardiac failure [Fatal]
  - Sudden cardiac death [Fatal]
